FAERS Safety Report 25222085 (Version 2)
Quarter: 2025Q2

REPORT INFORMATION
  Report Type: Spontaneous
  Country: US (occurrence: US)
  Receive Date: 20250421
  Receipt Date: 20250627
  Transmission Date: 20250716
  Serious: Yes (Hospitalization, Other)
  Sender: REGENERON
  Company Number: US-REGENERON PHARMACEUTICALS, INC.-2025-066024

PATIENT
  Age: 83 Year
  Sex: Male

DRUGS (2)
  1. LIBTAYO [Suspect]
     Active Substance: CEMIPLIMAB-RWLC
     Indication: Squamous cell carcinoma
     Dosage: 350 MG, Q3W
     Dates: start: 202203
  2. CIPROFLOXACIN [Concomitant]
     Active Substance: CIPROFLOXACIN
     Indication: Product used for unknown indication

REACTIONS (15)
  - Hypovolaemic shock [Unknown]
  - Colitis [Unknown]
  - Acute kidney injury [Unknown]
  - Diarrhoea [Recovering/Resolving]
  - Disease progression [Unknown]
  - Dizziness [Unknown]
  - Headache [Unknown]
  - Weight decreased [Unknown]
  - Skin bacterial infection [Unknown]
  - Arteriosclerosis [Unknown]
  - Mucosal disorder [Unknown]
  - Skin turgor decreased [Unknown]
  - Skin ulcer [Unknown]
  - Hyperkeratosis [Unknown]
  - Skin exfoliation [Unknown]

NARRATIVE: CASE EVENT DATE: 20230201
